FAERS Safety Report 7987801-8 (Version None)
Quarter: 2011Q4

REPORT INFORMATION
  Report Type: 
  Country: None (occurrence: None)
  Receive Date: 20111216
  Receipt Date: 20101109
  Transmission Date: 20120403
  Serious: No
  Sender: FDA-Public Use
  Company Number: US-BRISTOL-MYERS SQUIBB COMPANY-15375488

PATIENT
  Age: 4 Decade
  Sex: Female

DRUGS (2)
  1. ABILIFY [Suspect]
     Dosage: INTERRUPTED AND RESTARTED WITH LOWER DOSE
  2. ANTIDEPRESSANT [Concomitant]

REACTIONS (1)
  - DYSKINESIA [None]
